FAERS Safety Report 19231772 (Version 2)
Quarter: 2021Q2

REPORT INFORMATION
  Report Type: Report from Study
  Country: DE (occurrence: DE)
  Receive Date: 20210507
  Receipt Date: 20210518
  Transmission Date: 20210717
  Serious: Yes (Death, Hospitalization)
  Sender: FDA-Public Use
  Company Number: DE-PFIZER INC-2021491077

PATIENT
  Age: 53 Year
  Sex: Female

DRUGS (16)
  1. CARBOPLATIN. [Suspect]
     Active Substance: CARBOPLATIN
     Indication: NON-SMALL CELL LUNG CANCER
     Dosage: ON 01/APR/2021, RECEIVED LAST DOSE OF CARBOPLATIN 5 MG/MIN/ML PRIOR TO EVENT
     Route: 042
     Dates: start: 20210217
  2. DEXAMETHASON [DEXAMETHASONE] [Concomitant]
     Active Substance: DEXAMETHASONE
     Dosage: 8 MG
     Route: 048
     Dates: start: 20210218
  3. VALSARTAN. [Concomitant]
     Active Substance: VALSARTAN
     Indication: HYPERTENSION
     Dosage: 80 MG, 1X/DAY
     Route: 048
  4. CEFUROXIM [Concomitant]
     Active Substance: CEFUROXIME
     Dosage: FREQ:0.5 D;
     Route: 048
     Dates: start: 20210316
  5. PREDNISOLON [PREDNISOLONE] [Concomitant]
     Active Substance: PREDNISOLONE
     Dosage: 250 MG
     Route: 042
     Dates: start: 20210311, end: 20210311
  6. ACICLOVIR [Concomitant]
     Active Substance: ACYCLOVIR
     Dosage: FREQ:.2 D;
     Route: 048
     Dates: start: 20210215, end: 20210221
  7. GRANISETRON [Concomitant]
     Active Substance: GRANISETRON
     Dosage: 2 MG
     Route: 048
     Dates: start: 20210217
  8. ADRENALIN (EPINEPHRINE) [Concomitant]
     Active Substance: EPINEPHRINE
     Dosage: UNK
     Dates: start: 20210311
  9. ATEZOLIZUMAB. [Suspect]
     Active Substance: ATEZOLIZUMAB
     Indication: NON-SMALL CELL LUNG CANCER
     Dosage: ON 01/APR/2021, RECEIVED LAST DOSE OF ATEZOLIZUMAB 1200 MG PRIOR TO EVENT
     Route: 042
     Dates: start: 20210217
  10. PANTOPRAZOL [PANTOPRAZOLE] [Concomitant]
     Active Substance: PANTOPRAZOLE
     Dosage: FREQ:.5 D;
     Route: 048
     Dates: start: 20210408, end: 20210414
  11. NAB?PACLITAXEL [Suspect]
     Active Substance: PACLITAXEL
     Dosage: UNK
     Route: 042
  12. NAB?PACLITAXEL [Suspect]
     Active Substance: PACLITAXEL
     Indication: NON-SMALL CELL LUNG CANCER
     Dosage: ON 01/APR/2021, RECEIVED LAST DOSE OF PACLITAXEL 175 MG/M2 PRIOR TO EVENT
     Route: 042
  13. PREDNISOLUT [PREDNISOLONE HEMISUCCINATE] [Concomitant]
     Dosage: 250 MG
     Route: 042
  14. SUCRABEST [Concomitant]
     Active Substance: SUCRALFATE
     Dosage: FREQ:.25 D;
     Route: 048
     Dates: start: 20210408, end: 20210414
  15. BEVACIZUMAB. [Suspect]
     Active Substance: BEVACIZUMAB
     Indication: NON-SMALL CELL LUNG CANCER
     Dosage: ON 01/APR/2021, RECEIVED LAST DOSE OF BEVACIZUMAB 15 MG/KG PRIOR TO EVENT
     Route: 042
     Dates: start: 20210217
  16. ENOXAPARIN [Concomitant]
     Active Substance: ENOXAPARIN
     Dosage: 40 MG, 1X/DAY
     Route: 058
     Dates: start: 20210309

REACTIONS (6)
  - Cough [Recovered/Resolved]
  - Oesophagitis [Not Recovered/Not Resolved]
  - Skin infection [Recovered/Resolved]
  - Hypersensitivity [Recovered/Resolved]
  - Skin infection [Recovered/Resolved]
  - Lung abscess [Fatal]

NARRATIVE: CASE EVENT DATE: 20210311
